FAERS Safety Report 4474531-2 (Version None)
Quarter: 2004Q4

REPORT INFORMATION
  Report Type: 
  Country: None (occurrence: None)
  Receive Date: 20041014
  Receipt Date: 20041005
  Transmission Date: 20050328
  Serious: Yes (Hospitalization, Other)
  Sender: FDA-Public Use
  Company Number: PHEH2004US10861

PATIENT
  Sex: 0

DRUGS (1)
  1. DIOVAN [Suspect]
     Dosage: UNK/UNK
     Route: 048

REACTIONS (1)
  - BLOOD GLUCOSE ABNORMAL [None]
